FAERS Safety Report 9782412 (Version 1)
Quarter: 2013Q4

REPORT INFORMATION
  Report Type: Spontaneous
  Country: FI (occurrence: FI)
  Receive Date: 20131226
  Receipt Date: 20131226
  Transmission Date: 20140711
  Serious: Yes (Hospitalization, Disabling)
  Sender: FDA-Public Use
  Company Number: PHHY2013FI150263

PATIENT
  Age: 80 Year
  Sex: Male

DRUGS (11)
  1. ZOMETA [Suspect]
     Indication: PROSTATE CANCER
     Dosage: UNK UKN, UNK
     Route: 042
     Dates: start: 20110215, end: 201112
  2. ZOMETA [Suspect]
     Indication: METASTASES TO BONE
  3. XGEVA [Suspect]
     Indication: METASTASES TO BONE
     Dosage: UNK UKN, UNK
     Route: 058
     Dates: start: 20120116, end: 20120319
  4. XGEVA [Suspect]
     Dosage: UNK UKN, UNK
     Route: 058
     Dates: start: 20120618, end: 20130213
  5. ABIRATERONE [Concomitant]
     Indication: PROSTATE CANCER
     Dosage: 1000 MG, UNK
     Route: 048
     Dates: start: 20111006, end: 20130213
  6. PREDNISOLONE [Concomitant]
     Dosage: 10 MG (5 + 5 MG), UNK
     Route: 048
     Dates: start: 20111006
  7. THYROXIN [Concomitant]
     Dosage: UNK UKN, UNK
     Route: 048
  8. PANADOL [Concomitant]
     Dosage: UNK UKN, UNK
     Route: 048
  9. SOMAC [Concomitant]
     Dosage: UNK UKN, UNK
     Route: 048
  10. CALCICHEW-D3 FORTE [Concomitant]
     Dosage: UNK UKN, UNK
     Route: 048
  11. PROCREN [Concomitant]
     Dosage: UNK UKN, UNK
     Route: 058

REACTIONS (1)
  - Osteonecrosis of jaw [Not Recovered/Not Resolved]
